FAERS Safety Report 8065115-8 (Version None)
Quarter: 2012Q1

REPORT INFORMATION
  Report Type: 
  Country: None (occurrence: None)
  Receive Date: 20120117
  Receipt Date: 20111222
  Transmission Date: 20120608
  Serious: Yes (Death, Hospitalization, Disabling, Other)
  Sender: FDA-Public Use
  Company Number: 2011P1004654

PATIENT
  Age: 66 Year
  Sex: Female

DRUGS (6)
  1. FENTANYL [Suspect]
     Indication: BLISTER
     Dosage: ;TDER 3 PATCHES; ;TDER
     Route: 062
     Dates: end: 20100804
  2. FENTANYL [Suspect]
     Indication: PAIN
     Dosage: ;TDER 3 PATCHES; ;TDER
     Route: 062
     Dates: end: 20100804
  3. FENTANYL [Suspect]
     Indication: BLISTER
     Dosage: ;TDER 3 PATCHES; ;TDER
     Route: 062
     Dates: start: 20100803
  4. FENTANYL [Suspect]
     Indication: PAIN
     Dosage: ;TDER 3 PATCHES; ;TDER
     Route: 062
     Dates: start: 20100803
  5. OXYCODONE HCL [Suspect]
  6. ZYVOX [Suspect]

REACTIONS (18)
  - STAPHYLOCOCCAL INFECTION [None]
  - UNRESPONSIVE TO STIMULI [None]
  - ANXIETY [None]
  - GASTROOESOPHAGEAL REFLUX DISEASE [None]
  - ACCIDENTAL OVERDOSE [None]
  - DEEP VEIN THROMBOSIS [None]
  - COLD SWEAT [None]
  - RHABDOMYOLYSIS [None]
  - ASPIRATION [None]
  - RENAL FAILURE ACUTE [None]
  - PNEUMONIA [None]
  - ANAEMIA [None]
  - STAPHYLOCOCCAL BACTERAEMIA [None]
  - CARDIAC ARREST [None]
  - RESPIRATORY FAILURE [None]
  - HYPOXIC-ISCHAEMIC ENCEPHALOPATHY [None]
  - HYPOKALAEMIA [None]
  - CARDIO-RESPIRATORY ARREST [None]
